FAERS Safety Report 23106379 (Version 2)
Quarter: 2023Q4

REPORT INFORMATION
  Report Type: Spontaneous
  Country: DE (occurrence: DE)
  Receive Date: 20231025
  Receipt Date: 20231107
  Transmission Date: 20240110
  Serious: Yes (Death, Life-Threatening, Hospitalization, Other)
  Sender: FDA-Public Use
  Company Number: None

PATIENT
  Age: 68 Year
  Sex: Male
  Weight: 55 kg

DRUGS (6)
  1. METHOTREXATE [Suspect]
     Active Substance: METHOTREXATE
     Indication: Systemic scleroderma
     Dosage: 25 MG, QW
     Route: 058
     Dates: start: 202110, end: 202205
  2. OFEV [Suspect]
     Active Substance: NINTEDANIB
     Dosage: 100 MG, QD
     Route: 048
     Dates: start: 20220607
  3. OFEV [Suspect]
     Active Substance: NINTEDANIB
     Dosage: 100 MG, Q12H
     Route: 048
     Dates: start: 20220714
  4. OFEV [Suspect]
     Active Substance: NINTEDANIB
     Indication: Interstitial lung disease
     Dosage: 150 MG, Q12H
     Route: 048
     Dates: start: 20220607, end: 20220714
  5. CYCLOPHOSPHAMIDE [Concomitant]
     Active Substance: CYCLOPHOSPHAMIDE
     Indication: Systemic scleroderma
     Dosage: 1000 MG, QD
     Route: 042
     Dates: start: 20220516
  6. CYCLOPHOSPHAMIDE [Concomitant]
     Active Substance: CYCLOPHOSPHAMIDE
     Dosage: UNK
     Route: 042
     Dates: start: 20220708

REACTIONS (5)
  - Death [Fatal]
  - Hypocalcaemia [Not Recovered/Not Resolved]
  - Pneumothorax [Not Recovered/Not Resolved]
  - Dyspnoea [Not Recovered/Not Resolved]
  - Diarrhoea [Recovered/Resolved]

NARRATIVE: CASE EVENT DATE: 20220719
